FAERS Safety Report 17795867 (Version 1)
Quarter: 2020Q2

REPORT INFORMATION
  Report Type: Spontaneous
  Country: ES (occurrence: ES)
  Receive Date: 20200516
  Receipt Date: 20200516
  Transmission Date: 20200714
  Serious: Yes (Other)
  Sender: FDA-Public Use
  Company Number: ES-MICRO LABS LIMITED-ML2020-01534

PATIENT
  Age: 71 Year
  Sex: Female

DRUGS (11)
  1. ASPIRIN. [Suspect]
     Active Substance: ASPIRIN
     Dosage: PER DAY
  2. BROMAZEPAM [Suspect]
     Active Substance: BROMAZEPAM
     Dosage: REDUCED TO 1.5MG AT BREAKFAST AND DINNER
  3. OMEPRAZOLE. [Suspect]
     Active Substance: OMEPRAZOLE
     Dosage: PER DAY
  4. AMLODIPINE [Suspect]
     Active Substance: AMLODIPINE BESYLATE
     Dosage: AT BREAKFAST
  5. OXCARBAZEPINE. [Suspect]
     Active Substance: OXCARBAZEPINE
     Dosage: EVERY 12 H (REINTRODUCED 3 MONTHS AGO)
  6. LOSARTAN. [Suspect]
     Active Substance: LOSARTAN
     Dosage: AT BREAKFAST
  7. QUETIAPINE. [Suspect]
     Active Substance: QUETIAPINE
     Dosage: AT BREAKFAST AND DINNER
  8. QUETIAPINE. [Suspect]
     Active Substance: QUETIAPINE
     Dosage: REDUCED TO 25MG AT BREAKFAST AND DINNER
  9. PREGABALIN. [Suspect]
     Active Substance: PREGABALIN
     Dosage: EVERY 8H
  10. SIMVASTATIN. [Suspect]
     Active Substance: SIMVASTATIN
     Dosage: AT DINNER
  11. BROMAZEPAM [Suspect]
     Active Substance: BROMAZEPAM
     Dosage: VERY 8 H

REACTIONS (1)
  - Parkinsonism [Recovered/Resolved]
